FAERS Safety Report 20946221 (Version 5)
Quarter: 2022Q4

REPORT INFORMATION
  Report Type: Report from Study
  Country: CA (occurrence: CA)
  Receive Date: 20220610
  Receipt Date: 20221214
  Transmission Date: 20230113
  Serious: Yes (Other)
  Sender: FDA-Public Use
  Company Number: CA-NOVARTISPH-NVSC2022CA107528

PATIENT
  Age: 76 Year
  Sex: Female

DRUGS (4)
  1. TAFINLAR [Suspect]
     Active Substance: DABRAFENIB MESYLATE
     Indication: Non-small cell lung cancer metastatic
     Dosage: 150 MG, BID
     Route: 048
     Dates: start: 20220430
  2. MEKINIST [Suspect]
     Active Substance: TRAMETINIB DIMETHYL SULFOXIDE
     Indication: Non-small cell lung cancer metastatic
     Dosage: 2 MG, QD
     Route: 048
     Dates: start: 20220430
  3. GLUCOPHAGE [Concomitant]
     Active Substance: METFORMIN HYDROCHLORIDE
     Indication: Product used for unknown indication
     Dosage: UNK
     Route: 065
  4. JANUVIA [Concomitant]
     Active Substance: SITAGLIPTIN PHOSPHATE
     Indication: Product used for unknown indication
     Route: 065

REACTIONS (9)
  - Oesophageal food impaction [Unknown]
  - Back pain [Unknown]
  - Blood creatinine decreased [Unknown]
  - Influenza [Recovering/Resolving]
  - Cough [Not Recovered/Not Resolved]
  - Fatigue [Unknown]
  - Dyspnoea [Unknown]
  - Headache [Unknown]
  - Pain in extremity [Unknown]
